FAERS Safety Report 7165607 (Version 3)
Quarter: 2015Q3

REPORT INFORMATION
  Report Type: Spontaneous
  Country: FR (occurrence: FR)
  Receive Date: 20091103
  Receipt Date: 20150717
  Transmission Date: 20151125
  Serious: Yes (Hospitalization)
  Sender: FDA-Public Use
  Company Number: FR-PFIZER INC-2009286856

PATIENT
  Age: 74 Year
  Sex: Female

DRUGS (10)
  1. FLUOROURACIL. [Suspect]
     Active Substance: FLUOROURACIL
     Dosage: 3.4 G, 2X/DAY, COURSE 2
     Route: 042
     Dates: start: 20090604, end: 20090604
  2. ATROPINE. [Suspect]
     Active Substance: ATROPINE
     Dosage: 0.25 MG/ML, UNK
     Route: 042
     Dates: start: 20090604, end: 20090604
  3. FLUOROURACIL. [Suspect]
     Active Substance: FLUOROURACIL
     Dosage: 568 MG, 1X/DAY, COURSE 2
     Route: 042
     Dates: start: 20090604, end: 20090604
  4. FLUOROURACIL. [Suspect]
     Active Substance: FLUOROURACIL
     Indication: COLON CANCER
     Dosage: UNK, COURSE 1
     Route: 042
     Dates: start: 20081030, end: 20081217
  5. SOLU-MEDROL [Suspect]
     Active Substance: METHYLPREDNISOLONE SODIUM SUCCINATE
     Dosage: 1 DF, 1X/DAY
     Route: 042
     Dates: start: 20090604, end: 20090604
  6. CALCIUM LEVOFOLINATE [Suspect]
     Active Substance: LEVOLEUCOVORIN CALCIUM
     Indication: COLON CANCER
     Dosage: UNK, COURSE 1
     Route: 042
     Dates: start: 20081030, end: 20081217
  7. CAMPTO [Suspect]
     Active Substance: IRINOTECAN
     Indication: COLON CANCER
     Dosage: UNK, COURSE 1
     Route: 042
     Dates: start: 20081030, end: 20081217
  8. CAMPTO [Suspect]
     Active Substance: IRINOTECAN
     Dosage: 255.6 MG, COURSE 2
     Route: 042
     Dates: start: 20090604, end: 20090604
  9. CALCIUM LEVOFOLINATE [Suspect]
     Active Substance: LEVOLEUCOVORIN CALCIUM
     Dosage: 284 MG DAILY, COURSE 2
     Route: 042
     Dates: start: 20090604, end: 20090604
  10. ZOPHREN [Suspect]
     Active Substance: ONDANSETRON
     Dosage: 1 DF, 1X/DAY
     Route: 042
     Dates: start: 20090604, end: 20090604

REACTIONS (1)
  - Rash [Recovered/Resolved]

NARRATIVE: CASE EVENT DATE: 20090604
